FAERS Safety Report 5964538-8 (Version None)
Quarter: 2008Q4

REPORT INFORMATION
  Report Type: 
  Country: None (occurrence: None)
  Receive Date: 20081125
  Receipt Date: 20081117
  Transmission Date: 20090506
  Serious: Yes (Other)
  Sender: FDA-Public Use
  Company Number: DE-JNJFOC-20081103705

PATIENT
  Age: 31 Year
  Sex: Male

DRUGS (12)
  1. RISPERDAL CONSTA [Suspect]
     Indication: SCHIZOPHRENIA, PARANOID TYPE
     Route: 030
  2. ABILIFY [Suspect]
     Route: 048
  3. ABILIFY [Suspect]
     Indication: DRUG USE FOR UNKNOWN INDICATION
     Route: 048
  4. RISPERDAL [Suspect]
     Route: 048
  5. RISPERDAL [Suspect]
     Route: 048
  6. RISPERDAL [Suspect]
     Route: 048
  7. RISPERDAL [Suspect]
     Route: 048
  8. RISPERDAL [Suspect]
     Indication: SCHIZOPHRENIA, PARANOID TYPE
     Route: 048
  9. CIPRAMIL [Concomitant]
     Route: 048
  10. CIPRAMIL [Concomitant]
     Route: 048
  11. CIPRAMIL [Concomitant]
     Route: 048
  12. CIPRAMIL [Concomitant]
     Route: 048

REACTIONS (2)
  - BLOOD CREATINE PHOSPHOKINASE INCREASED [None]
  - HOSPITALISATION [None]
